FAERS Safety Report 5101078-2 (Version None)
Quarter: 2006Q3

REPORT INFORMATION
  Report Type: 
  Country: None (occurrence: None)
  Receive Date: 20060911
  Receipt Date: 20060828
  Transmission Date: 20061208
  Serious: Yes (Other)
  Sender: FDA-Public Use
  Company Number: TR-KINGPHARMUSA00001-K200601111

PATIENT
  Age: 69 Year
  Sex: Male

DRUGS (1)
  1. EPINEPHRINE [Suspect]
     Indication: GASTROINTESTINAL HAEMORRHAGE
     Dosage: 16 ML, SINGLE

REACTIONS (8)
  - AMAUROSIS FUGAX [None]
  - CEREBRAL ATROPHY [None]
  - EYE DISORDER [None]
  - HYPERTENSION [None]
  - PAPILLOEDEMA [None]
  - PUPILLARY LIGHT REFLEX TESTS ABNORMAL [None]
  - PUPILLARY REFLEX IMPAIRED [None]
  - RETINAL EXUDATES [None]
